FAERS Safety Report 21311920 (Version 1)
Quarter: 2022Q3

REPORT INFORMATION
  Report Type: Report from Study
  Country: CA (occurrence: CA)
  Receive Date: 20220909
  Receipt Date: 20220909
  Transmission Date: 20221027
  Serious: Yes (Other)
  Sender: FDA-Public Use
  Company Number: CA-BAUSCH-BL-2022-011742

PATIENT
  Sex: Female
  Weight: 120.64 kg

DRUGS (8)
  1. CONTRAVE [Suspect]
     Active Substance: BUPROPION HYDROCHLORIDE\NALTREXONE HYDROCHLORIDE
     Indication: Weight control
     Dosage: 90/8 MG. 1 TAB Q AM
     Route: 048
     Dates: start: 20220329, end: 2022
  2. CONTRAVE [Suspect]
     Active Substance: BUPROPION HYDROCHLORIDE\NALTREXONE HYDROCHLORIDE
     Dosage: 90/8 MG. 1 TAB Q AM, 1 TAB Q PM.
     Route: 048
     Dates: start: 20220405, end: 202204
  3. CONTRAVE [Suspect]
     Active Substance: BUPROPION HYDROCHLORIDE\NALTREXONE HYDROCHLORIDE
     Dosage: 90/8 MG. 2 TAB Q AM, 1 TAB Q PM
     Route: 048
     Dates: start: 20220422, end: 2022
  4. CONTRAVE [Suspect]
     Active Substance: BUPROPION HYDROCHLORIDE\NALTREXONE HYDROCHLORIDE
     Dosage: 90/8 MG. 2 TAB Q AM, 2 TAB Q PM
     Route: 048
     Dates: start: 20220605, end: 20220826
  5. SYNTHROID [Suspect]
     Active Substance: LEVOTHYROXINE SODIUM
     Indication: Hypothyroidism
     Dosage: DOSE DECREASED FROM 175-150 MCG.
     Route: 048
  6. SYNTHROID [Suspect]
     Active Substance: LEVOTHYROXINE SODIUM
     Dosage: DOSE DECREASED FROM 175-150 MCG. (150 MCG, 1 IN 24 HR)
     Route: 048
  7. OZEMPIC [Concomitant]
     Active Substance: SEMAGLUTIDE
     Indication: Type 2 diabetes mellitus
     Dosage: 1 MG, 1 IN 1 WK
  8. OZEMPIC [Concomitant]
     Active Substance: SEMAGLUTIDE
     Indication: Weight control

REACTIONS (24)
  - Haemorrhage urinary tract [Not Recovered/Not Resolved]
  - Renal impairment [Not Recovered/Not Resolved]
  - Thyroid hormones increased [Unknown]
  - Food intolerance [Not Recovered/Not Resolved]
  - Condition aggravated [Not Recovered/Not Resolved]
  - Reaction to excipient [Unknown]
  - Irritable bowel syndrome [Recovering/Resolving]
  - Sleep disorder [Not Recovered/Not Resolved]
  - Vertigo positional [Not Recovered/Not Resolved]
  - Headache [Recovered/Resolved]
  - Heart rate increased [Not Recovered/Not Resolved]
  - Tremor [Recovering/Resolving]
  - Constipation [Recovering/Resolving]
  - Dizziness [Recovering/Resolving]
  - Nausea [Not Recovered/Not Resolved]
  - Hot flush [Recovering/Resolving]
  - Dry mouth [Recovering/Resolving]
  - Tinnitus [Not Recovered/Not Resolved]
  - Mood altered [Recovering/Resolving]
  - Vomiting [Recovered/Resolved]
  - Hyperhidrosis [Recovered/Resolved]
  - Malaise [Recovered/Resolved]
  - Product prescribing error [Unknown]
  - Drug titration error [Unknown]

NARRATIVE: CASE EVENT DATE: 20220101
